FAERS Safety Report 11224882 (Version 3)
Quarter: 2015Q3

REPORT INFORMATION
  Report Type: Report from Study
  Country: IT (occurrence: IT)
  Receive Date: 20150629
  Receipt Date: 20150721
  Transmission Date: 20151125
  Serious: Yes (Other)
  Sender: FDA-Public Use
  Company Number: IT-ROCHE-1595588

PATIENT
  Age: 67 Year
  Sex: Male

DRUGS (39)
  1. ALLOPURINOL. [Concomitant]
     Active Substance: ALLOPURINOL
     Route: 048
     Dates: start: 20131202, end: 20140414
  2. PARACETAMOL [Concomitant]
     Active Substance: ACETAMINOPHEN
     Route: 042
     Dates: start: 20140818, end: 20140819
  3. POTASSIUM CHLORIDE. [Concomitant]
     Active Substance: POTASSIUM CHLORIDE
     Route: 048
     Dates: start: 20140821, end: 20140902
  4. GLAZIDIM [Concomitant]
     Active Substance: CEFTAZIDIME
     Route: 042
     Dates: start: 20140813, end: 20140817
  5. CHLORPHENIRAMINE. [Concomitant]
     Active Substance: CHLORPHENIRAMINE
     Dosage: GIVEN BEFORE EACH OBINUTUZUMAB ADMINISTRATION
     Route: 042
     Dates: start: 20131203, end: 20140428
  6. INSULIN [Concomitant]
     Active Substance: INSULIN NOS
     Route: 058
     Dates: start: 20140815, end: 20140815
  7. OBINUTUZUMAB [Suspect]
     Active Substance: OBINUTUZUMAB
     Indication: CHRONIC LYMPHOCYTIC LEUKAEMIA
     Route: 042
     Dates: start: 20131203, end: 20131203
  8. METHYLPREDNISOLONE. [Concomitant]
     Active Substance: METHYLPREDNISOLONE
     Dosage: GIVEN BEFORE EACH OBINUTUZUMAB ADMINISTRATION
     Route: 042
     Dates: start: 20131203, end: 20140428
  9. FOLIC ACID. [Concomitant]
     Active Substance: FOLIC ACID
     Route: 048
     Dates: start: 20140818
  10. OBINUTUZUMAB [Suspect]
     Active Substance: OBINUTUZUMAB
     Route: 042
     Dates: start: 20131217, end: 20131217
  11. DELTACORTENE [Concomitant]
     Active Substance: PREDNISONE
     Route: 048
     Dates: start: 20140625, end: 20140703
  12. PARACETAMOL [Concomitant]
     Active Substance: ACETAMINOPHEN
     Route: 042
     Dates: start: 20140817, end: 20140817
  13. CLINDAMYCIN [Concomitant]
     Active Substance: CLINDAMYCIN\CLINDAMYCIN PHOSPHATE
     Route: 042
     Dates: start: 20140815, end: 20140824
  14. INSULIN [Concomitant]
     Active Substance: INSULIN NOS
     Route: 058
     Dates: start: 20140818, end: 20140818
  15. ONDANSETRON [Concomitant]
     Active Substance: ONDANSETRON
     Dosage: GIVEN BEFORE EACH OBINUTUZUMAB ADMINISTRATION
     Route: 042
     Dates: start: 20131203, end: 20140430
  16. INSULIN [Concomitant]
     Active Substance: INSULIN NOS
     Route: 058
     Dates: start: 20140819, end: 20140819
  17. ARANESP [Concomitant]
     Active Substance: DARBEPOETIN ALFA
     Route: 058
     Dates: start: 20140319, end: 20140526
  18. GLAZIDIM [Concomitant]
     Active Substance: CEFTAZIDIME
     Route: 042
     Dates: start: 20140818, end: 20140826
  19. DELTACORTENE [Concomitant]
     Active Substance: PREDNISONE
     Route: 048
     Dates: start: 20140704, end: 20140804
  20. PARACETAMOL [Concomitant]
     Active Substance: ACETAMINOPHEN
     Route: 048
     Dates: start: 20140813, end: 20140816
  21. INSULIN [Concomitant]
     Active Substance: INSULIN NOS
     Indication: DIABETES MELLITUS
     Route: 058
     Dates: start: 20140814, end: 20140814
  22. OBINUTUZUMAB [Suspect]
     Active Substance: OBINUTUZUMAB
     Route: 042
     Dates: start: 20131204, end: 20131204
  23. FLUDARABINE [Suspect]
     Active Substance: FLUDARABINE PHOSPHATE
     Indication: CHRONIC LYMPHOCYTIC LEUKAEMIA
     Dosage: DAYS 1, 2, AND 3 EACH CYCLE?MOST RECENT DOSE PRIOR TO EVENT ONSET 30/APR/2014
     Route: 042
     Dates: start: 20131203
  24. CYCLOPHOSPHAMIDE. [Suspect]
     Active Substance: CYCLOPHOSPHAMIDE
     Indication: CHRONIC LYMPHOCYTIC LEUKAEMIA
     Dosage: DAYS 1, 2, AND 3 EACH CYCLE?MOST RECENT DOSE PRIOR TO EVENT ONSET 30/APR/2014
     Route: 042
     Dates: start: 20131203
  25. ACYCLOVIR. [Concomitant]
     Active Substance: ACYCLOVIR
     Route: 048
     Dates: start: 20131202
  26. BACTRIM [Concomitant]
     Active Substance: SULFAMETHOXAZOLE\TRIMETHOPRIM
     Route: 048
     Dates: start: 20131203, end: 20140718
  27. LEVOFLOXACIN. [Concomitant]
     Active Substance: LEVOFLOXACIN
     Route: 048
     Dates: start: 20131210, end: 20131217
  28. SOLDESAM [Concomitant]
     Active Substance: DEXAMETHASONE
     Route: 048
     Dates: start: 20140620, end: 20140624
  29. BECOZYM [Concomitant]
     Active Substance: VITAMINS
     Route: 048
     Dates: start: 20140818, end: 20140902
  30. OBINUTUZUMAB [Suspect]
     Active Substance: OBINUTUZUMAB
     Dosage: DAY 1 EACH CYCLE?MOST RECENT DOSE PRIOR TO EVENT ONSET 28/APR/2014
     Route: 042
     Dates: start: 20140107
  31. SOLDESAM [Concomitant]
     Active Substance: DEXAMETHASONE
     Route: 048
     Dates: start: 20140526, end: 20140530
  32. LEVOXACIN [Concomitant]
     Active Substance: LEVOFLOXACIN
     Route: 048
     Dates: start: 20140619, end: 20140626
  33. PARACETAMOL [Concomitant]
     Active Substance: ACETAMINOPHEN
     Dosage: GIVEN BEFORE EACH OBINUTUZUMAB ADMINISTRATION
     Route: 048
     Dates: start: 20131203, end: 20140428
  34. FLUCONAZOLE. [Concomitant]
     Active Substance: FLUCONAZOLE
     Route: 048
     Dates: start: 20140815, end: 20140826
  35. CORTISONE ACETATE. [Concomitant]
     Active Substance: CORTISONE ACETATE
     Route: 048
     Dates: start: 20140813, end: 20140902
  36. OMEPRAZOLE. [Concomitant]
     Active Substance: OMEPRAZOLE
     Route: 065
     Dates: start: 20140817, end: 20140824
  37. OMEPRAZOLE. [Concomitant]
     Active Substance: OMEPRAZOLE
     Route: 048
     Dates: start: 20140825
  38. METFORMIN [Concomitant]
     Active Substance: METFORMIN HYDROCHLORIDE
     Indication: DIABETES MELLITUS
     Route: 048
     Dates: start: 20140805, end: 20140814
  39. ROCEFIN [Concomitant]
     Active Substance: CEFTRIAXONE SODIUM
     Route: 042
     Dates: start: 20140813, end: 20140814

REACTIONS (1)
  - Myelodysplastic syndrome [Not Recovered/Not Resolved]

NARRATIVE: CASE EVENT DATE: 20141027
